FAERS Safety Report 5723962-9 (Version None)
Quarter: 2008Q2

REPORT INFORMATION
  Report Type: 
  Country: None (occurrence: None)
  Receive Date: 20080430
  Receipt Date: 20080428
  Transmission Date: 20081010
  Serious: Yes (Hospitalization)
  Sender: FDA-Public Use
  Company Number: US-KINGPHARMUSA00001-K200800490

PATIENT

DRUGS (14)
  1. ALTACE [Suspect]
     Dates: start: 20071220, end: 20071225
  2. ALTACE [Suspect]
     Dates: start: 20071201
  3. STUDY DRUG CODE UNBROKEN [Concomitant]
     Indication: ACUTE CORONARY SYNDROME
     Route: 048
     Dates: start: 20071221
  4. ALDACTONE [Concomitant]
     Dates: start: 20071221, end: 20071230
  5. ALDACTONE [Concomitant]
     Dates: start: 20080103
  6. CARLOC [Concomitant]
     Dates: start: 20071223, end: 20071224
  7. CARLOC [Concomitant]
     Dates: start: 20071225
  8. ZOLPIDEM TARTRATE [Concomitant]
     Dates: start: 20080403
  9. CARBOMIX [Concomitant]
     Dates: start: 20080306, end: 20080313
  10. ECOSPRIN [Concomitant]
     Dates: start: 20071220, end: 20071220
  11. ECOSPRIN [Concomitant]
     Dates: start: 20071221, end: 20071227
  12. ECOSPRIN [Concomitant]
     Dates: start: 20071228
  13. ATORVASTATIN CALCIUM [Concomitant]
     Dates: start: 20071101
  14. LASIX [Concomitant]
     Dates: start: 20071231

REACTIONS (2)
  - RENAL FAILURE ACUTE [None]
  - URINARY TRACT INFECTION [None]
